FAERS Safety Report 4882891-3 (Version None)
Quarter: 2006Q1

REPORT INFORMATION
  Report Type: 
  Country: None (occurrence: None)
  Receive Date: 20060112
  Receipt Date: 20060102
  Transmission Date: 20060701
  Serious: Yes (Disabling)
  Sender: FDA-Public Use
  Company Number: 2005105323

PATIENT
  Sex: Female
  Weight: 80 kg

DRUGS (1)
  1. ZITHROMAX [Suspect]
     Indication: BRONCHITIS
     Dosage: 500 MG DAILY, ORAL
     Route: 048
     Dates: start: 20050608, end: 20050610

REACTIONS (1)
  - ANOSMIA [None]
